FAERS Safety Report 20991983 (Version 1)
Quarter: 2022Q2

REPORT INFORMATION
  Report Type: Spontaneous
  Country: US (occurrence: None)
  Receive Date: 20220620
  Receipt Date: 20220620
  Transmission Date: 20220721
  Serious: Yes (Life-Threatening, Hospitalization)
  Sender: FDA-Public Use
  Company Number: None

PATIENT
  Age: 72 Year
  Sex: Female
  Weight: 88.45 kg

DRUGS (4)
  1. DEVICE [Suspect]
     Active Substance: DEVICE
     Indication: Product used for unknown indication
  2. FENTANYL [Suspect]
     Active Substance: FENTANYL
  3. BUPIVACAINE [Suspect]
     Active Substance: BUPIVACAINE
  4. MORPHINE [Suspect]
     Active Substance: MORPHINE

REACTIONS (11)
  - Blood pressure fluctuation [None]
  - Myocardial infarction [None]
  - Infection [None]
  - White blood cell count increased [None]
  - Kidney infection [None]
  - Pollakiuria [None]
  - Fatigue [None]
  - Agitation [None]
  - Dehydration [None]
  - Withdrawal syndrome [None]
  - Diabetes mellitus [None]

NARRATIVE: CASE EVENT DATE: 20200720
